FAERS Safety Report 9408515 (Version 3)
Quarter: 2014Q2

REPORT INFORMATION
  Report Type: Spontaneous
  Country: US (occurrence: None)
  Receive Date: 20130716
  Receipt Date: 20140507
  Transmission Date: 20141212
  Serious: Yes (Hospitalization, Other)
  Sender: FDA-Public Use
  Company Number: JPI-P-033431

PATIENT
  Age: 40 Year
  Sex: Female

DRUGS (1)
  1. XYREM [Suspect]
     Indication: NARCOLEPSY
     Dosage: (2.25GM, 2 IN 2 D) ORAL
     Route: 048
     Dates: start: 20050404

REACTIONS (8)
  - Brain operation [None]
  - Fatigue [None]
  - Economic problem [None]
  - Arnold-Chiari malformation [None]
  - Multiple injuries [None]
  - Fall [None]
  - Memory impairment [None]
  - Condition aggravated [None]
